FAERS Safety Report 8062302-X (Version None)
Quarter: 2012Q1

REPORT INFORMATION
  Report Type: 
  Country: None (occurrence: None)
  Receive Date: 20120123
  Receipt Date: 20120119
  Transmission Date: 20120608
  Serious: Yes (Other)
  Sender: FDA-Public Use
  Company Number: US-PFIZER INC-2011230776

PATIENT
  Sex: Female
  Weight: 61 kg

DRUGS (6)
  1. NARDIL [Suspect]
     Indication: BIPOLAR I DISORDER
     Dosage: 2 15MG TABLETS 3X/DAY
     Dates: start: 19910101
  2. NARDIL [Suspect]
     Dosage: 2 15MG TABLETS 3X/DAY
  3. ZOLOFT [Concomitant]
     Dosage: UNK
  4. XANAX [Concomitant]
     Dosage: 2 MG, 1X/DAY
  5. NICARDIPINE [Concomitant]
     Dosage: UNK
  6. MULTI-VITAMINS [Concomitant]
     Dosage: UNK

REACTIONS (2)
  - PSYCHOTIC DISORDER [None]
  - WEIGHT DECREASED [None]
